FAERS Safety Report 16037882 (Version 1)
Quarter: 2019Q1

REPORT INFORMATION
  Report Type: Report from Study
  Country: JP (occurrence: JP)
  Receive Date: 20190305
  Receipt Date: 20190305
  Transmission Date: 20190418
  Serious: Yes (Life-Threatening, Hospitalization, Other)
  Sender: FDA-Public Use
  Company Number: JP-PFIZER INC-2019089789

PATIENT
  Age: 31 Year
  Sex: Female

DRUGS (21)
  1. PRIMPERAN [Concomitant]
     Active Substance: METOCLOPRAMIDE HYDROCHLORIDE
     Dosage: UNK
     Dates: start: 20180504, end: 20180522
  2. PAXIL [Concomitant]
     Active Substance: PAROXETINE HYDROCHLORIDE
     Dosage: UNK
     Dates: start: 20180519, end: 20180522
  3. LINEZOLID. [Suspect]
     Active Substance: LINEZOLID
     Indication: TUBERCULOSIS
     Dosage: 600 MG, DAILY
     Route: 048
     Dates: start: 20180521, end: 20180522
  4. BELSOMRA [Concomitant]
     Active Substance: SUVOREXANT
     Dosage: UNK
     Dates: start: 20180605, end: 20180930
  5. DELTYBA [Suspect]
     Active Substance: DELAMANID
     Dosage: 200 MG, DAILY
     Route: 048
     Dates: start: 20180529
  6. PYDOXAL [Concomitant]
     Active Substance: PYRIDOXAL
     Dosage: UNK
     Dates: start: 20180503
  7. PYRAMIDE [Concomitant]
     Active Substance: PYRAZINAMIDE
     Dosage: UNK
     Dates: start: 201801
  8. ISCOTIN [Concomitant]
     Active Substance: ISONIAZID
     Dosage: UNK
     Dates: start: 201801, end: 20180522
  9. NICOTINAMIDE [Concomitant]
     Active Substance: NIACINAMIDE
     Dosage: UNK
     Dates: start: 20180503, end: 20180522
  10. DOMPERIDONE [Concomitant]
     Active Substance: DOMPERIDONE
     Dosage: UNK
     Dates: start: 20180605
  11. CERCINE [Concomitant]
     Active Substance: DIAZEPAM
     Dosage: UNK
     Dates: start: 20180521, end: 20180521
  12. LINEZOLID. [Suspect]
     Active Substance: LINEZOLID
     Dosage: 600 MG, DAILY
     Route: 048
     Dates: start: 20180606, end: 20181001
  13. CYCLOSERINE. [Suspect]
     Active Substance: CYCLOSERINE
     Indication: PULMONARY TUBERCULOSIS
     Dosage: 500 MG, DAILY
     Dates: start: 201805, end: 20180519
  14. LEVOFLOXACIN. [Concomitant]
     Active Substance: LEVOFLOXACIN
     Dosage: UNK
     Dates: start: 201805
  15. OLOPATADINE HYDROCHLORIDE. [Concomitant]
     Active Substance: OLOPATADINE HYDROCHLORIDE
     Dosage: UNK
     Dates: start: 20180512
  16. E KEPPRA [Concomitant]
     Active Substance: LEVETIRACETAM
     Dosage: UNK
     Dates: start: 20180521, end: 20180521
  17. DELTYBA [Suspect]
     Active Substance: DELAMANID
     Indication: PULMONARY TUBERCULOSIS
     Dosage: 200 MG, DAILY
     Route: 048
     Dates: start: 20180515, end: 20180522
  18. TUBERMIN [Concomitant]
     Active Substance: ETHIONAMIDE
     Dosage: UNK
     Dates: start: 201805
  19. TUBERACTIN [ENVIOMYCIN SULFATE] [Concomitant]
     Dosage: UNK
  20. LORAZEPAM. [Concomitant]
     Active Substance: LORAZEPAM
     Dosage: UNK
     Dates: start: 20180519, end: 20180522
  21. MOSAPRIDE CITRATE [Concomitant]
     Active Substance: MOSAPRIDE CITRATE
     Dosage: UNK
     Dates: start: 20180625

REACTIONS (3)
  - Altered state of consciousness [Recovering/Resolving]
  - Suicide attempt [Recovering/Resolving]
  - Hypoaesthesia [Not Recovered/Not Resolved]

NARRATIVE: CASE EVENT DATE: 20180519
